FAERS Safety Report 6316136-4 (Version None)
Quarter: 2009Q3

REPORT INFORMATION
  Report Type: 
  Country: None (occurrence: None)
  Receive Date: 20090820
  Receipt Date: 20090703
  Transmission Date: 20100115
  Serious: Yes (Death, Other)
  Sender: FDA-Public Use
  Company Number: PHHY2009JP20119

PATIENT
  Sex: Female

DRUGS (10)
  1. ICL670A ICL+DISTAB [Suspect]
     Indication: IRON OVERLOAD
     Dosage: 500 MG DAILY
     Route: 048
     Dates: start: 20080808, end: 20080819
  2. NEORAL [Suspect]
     Indication: APLASTIC ANAEMIA
     Dosage: 150 MG, UNK
     Route: 048
     Dates: start: 20080808, end: 20080819
  3. DESFERAL [Suspect]
     Dosage: 500 MG, UNK
     Route: 042
     Dates: start: 20050927, end: 20051122
  4. PREDONINE [Suspect]
     Indication: APLASTIC ANAEMIA
     Dosage: 2.5 MG DAILY
     Route: 048
     Dates: start: 20080808, end: 20080819
  5. GASLON [Concomitant]
     Indication: APLASTIC ANAEMIA
     Dosage: 4 MG, UNK
     Route: 048
     Dates: start: 20080808, end: 20080819
  6. URSO 250 [Concomitant]
     Indication: APLASTIC ANAEMIA
     Dosage: 600 MG, UNK
     Route: 048
     Dates: start: 20080808, end: 20080819
  7. THYRADIN S [Concomitant]
     Indication: APLASTIC ANAEMIA
     Dosage: 100 UG, UNK
     Route: 048
     Dates: start: 20080808, end: 20080819
  8. URINORM [Concomitant]
     Indication: PROPHYLAXIS
     Dosage: 50 MG, UNK
     Route: 048
     Dates: start: 20080808, end: 20080819
  9. LASIX [Concomitant]
     Dosage: 20 MG, UNK
     Route: 048
     Dates: start: 20080808, end: 20080819
  10. RED BLOOD CELLS [Concomitant]
     Dosage: 2 UNITS EVERY TWO WEEKS
     Dates: start: 20080808, end: 20080820

REACTIONS (5)
  - HEPATIC FUNCTION ABNORMAL [None]
  - MULTI-ORGAN FAILURE [None]
  - RENAL IMPAIRMENT [None]
  - SEPTIC SHOCK [None]
  - SJOGREN'S SYNDROME [None]
